FAERS Safety Report 7347824-9 (Version None)
Quarter: 2011Q1

REPORT INFORMATION
  Report Type: 
  Country: None (occurrence: None)
  Receive Date: 20110311
  Receipt Date: 20110301
  Transmission Date: 20110831
  Serious: Yes (Hospitalization, Disabling)
  Sender: FDA-Public Use
  Company Number: US-MERCK-1006USA03992

PATIENT
  Age: 58 Year
  Sex: Female

DRUGS (2)
  1. FOSAMAX [Suspect]
     Indication: OSTEOPENIA
     Route: 048
     Dates: start: 20040715, end: 20080402
  2. ACTONEL [Concomitant]
     Indication: OSTEOPENIA
     Route: 048
     Dates: start: 20030715, end: 20040715

REACTIONS (17)
  - DENTAL CARIES [None]
  - PERIODONTAL DISEASE [None]
  - TRIGGER FINGER [None]
  - ARTHRITIS [None]
  - TOOTH FRACTURE [None]
  - LICHEN PLANUS [None]
  - ACTINOMYCOSIS [None]
  - AUTOIMMUNE DISORDER [None]
  - TOOTH DISORDER [None]
  - TOOTH INFECTION [None]
  - JAW DISORDER [None]
  - HERPES ZOSTER [None]
  - OSTEONECROSIS OF JAW [None]
  - ADVERSE EVENT [None]
  - GINGIVAL ABSCESS [None]
  - LYMPHADENOPATHY [None]
  - ORAL DISORDER [None]
